FAERS Safety Report 23026971 (Version 1)
Quarter: 2023Q4

REPORT INFORMATION
  Report Type: Spontaneous
  Country: US (occurrence: None)
  Receive Date: 20231003
  Receipt Date: 20231003
  Transmission Date: 20240110
  Serious: Yes (Life-Threatening, Hospitalization, Other)
  Sender: FDA-Public Use
  Company Number: None

PATIENT
  Age: 47 Year
  Sex: Male
  Weight: 76.5 kg

DRUGS (1)
  1. .DELTA.8-TETRAHYDROCANNABINOL\HERBALS [Suspect]
     Active Substance: .DELTA.8-TETRAHYDROCANNABINOL\HERBALS
     Indication: Insomnia
     Dosage: OTHER QUANTITY : 1 GUMMY;?
     Route: 048
     Dates: start: 20230929, end: 20230929

REACTIONS (9)
  - Hallucination, visual [None]
  - Disorientation [None]
  - Palpitations [None]
  - Depressed level of consciousness [None]
  - Hallucination, tactile [None]
  - Altered state of consciousness [None]
  - Screaming [None]
  - Emotional distress [None]
  - Product formulation issue [None]

NARRATIVE: CASE EVENT DATE: 20231002
